FAERS Safety Report 8541363-5 (Version None)
Quarter: 2012Q3

REPORT INFORMATION
  Report Type: 
  Country: None (occurrence: None)
  Receive Date: 20120726
  Receipt Date: 20120717
  Transmission Date: 20120928
  Serious: Yes (Hospitalization, Other)
  Sender: FDA-Public Use
  Company Number: JP-VERTEX PHARMACEUTICALS INC.-AE-2012-007725

PATIENT
  Age: 66 Year
  Sex: Male

DRUGS (11)
  1. TELAVIC (TELAPREVIR) [Suspect]
     Indication: HEPATITIS C
     Route: 048
     Dates: start: 20120319, end: 20120514
  2. PEG-INTRON [Concomitant]
     Route: 051
     Dates: start: 20120524
  3. REBETOL [Concomitant]
     Route: 048
     Dates: start: 20120430
  4. REBETOL [Concomitant]
     Route: 048
     Dates: start: 20120319, end: 20120429
  5. DIOVAN [Concomitant]
     Route: 048
  6. PEG-INTRON [Concomitant]
     Indication: HEPATITIS C
     Route: 051
     Dates: start: 20120319, end: 20120514
  7. URSO 250 [Concomitant]
     Route: 048
  8. NIZATIDINE [Concomitant]
     Route: 048
  9. REBETOL [Concomitant]
     Route: 048
     Dates: start: 20120524
  10. NORVASC [Concomitant]
     Route: 048
  11. REBETOL [Concomitant]
     Route: 048
     Dates: start: 20120508, end: 20120514

REACTIONS (1)
  - STEVENS-JOHNSON SYNDROME [None]
